FAERS Safety Report 7661771-4 (Version None)
Quarter: 2011Q3

REPORT INFORMATION
  Report Type: 
  Country: None (occurrence: None)
  Receive Date: 20110805
  Receipt Date: 20101027
  Transmission Date: 20111222
  Serious: No
  Sender: FDA-Public Use
  Company Number: US-ABBOTT-10P-163-0681741-00

PATIENT
  Sex: Female
  Weight: 75.364 kg

DRUGS (4)
  1. THYROID MEDICATION [Concomitant]
     Indication: HYPOTHYROIDISM
  2. ASPIRIN [Concomitant]
     Indication: PRODUCT USED FOR UNKNOWN INDICATION
  3. NIASPAN [Suspect]
     Indication: BLOOD CHOLESTEROL INCREASED
     Dosage: DOSE UNKNOWN
     Dates: start: 20100901, end: 20100901
  4. CALCIUM+VIT D [Concomitant]
     Indication: MINERAL SUPPLEMENTATION

REACTIONS (1)
  - DYSPEPSIA [None]
